FAERS Safety Report 9395123 (Version 2)
Quarter: 2013Q3

REPORT INFORMATION
  Report Type: Spontaneous
  Country: GB (occurrence: GB)
  Receive Date: 20130711
  Receipt Date: 20130719
  Transmission Date: 20140515
  Serious: Yes (Other)
  Sender: FDA-Public Use
  Company Number: GB-MERCK-1305GBR011860

PATIENT
  Age: 29 Year
  Sex: Female
  Weight: 60.32 kg

DRUGS (5)
  1. SYCREST [Suspect]
     Indication: SCHIZOPHRENIA
     Dosage: 5 MG, BID
     Route: 060
     Dates: start: 20130518
  2. SYCREST [Suspect]
     Dosage: 5 MG, HS
     Route: 060
  3. SYCREST [Suspect]
     Dosage: 10 MG, HS
     Route: 060
  4. LEVETIRACETAM [Concomitant]
  5. PHENYTOIN [Concomitant]

REACTIONS (6)
  - Eating disorder [Unknown]
  - Fluid intake reduced [Unknown]
  - Sedation [Recovered/Resolved]
  - Dizziness [Unknown]
  - Urinary incontinence [Unknown]
  - Off label use [Unknown]
